FAERS Safety Report 5329512-3 (Version None)
Quarter: 2007Q2

REPORT INFORMATION
  Report Type: 
  Country: None (occurrence: None)
  Receive Date: 20070223
  Receipt Date: 20060314
  Transmission Date: 20071010
  Serious: Yes (Hospitalization)
  Sender: FDA-Public Use
  Company Number: WAES 0603USA02180

PATIENT
  Age: 55 Year
  Sex: Female
  Weight: 97.5234 kg

DRUGS (16)
  1. ZOCOR [Suspect]
     Indication: CORONARY ARTERY DISEASE
     Dosage: 80 MG/DAILY/PO
     Route: 048
     Dates: start: 20010101, end: 20051222
  2. ACCUPRIL [Concomitant]
  3. DETROL [Concomitant]
  4. DULCOLAX [Concomitant]
  5. IMDUR [Concomitant]
  6. LOPRESSOR [Concomitant]
  7. NORVASC [Concomitant]
  8. PEPCID [Concomitant]
  9. PLAVIX [Concomitant]
  10. SYNTHROID [Concomitant]
  11. TOPROL-XL [Concomitant]
  12. ZANTAC [Concomitant]
  13. ZETIA [Concomitant]
  14. ASPIRIN [Concomitant]
  15. FOLIC ACID [Concomitant]
  16. LISINOPRIL [Concomitant]

REACTIONS (3)
  - DYSPNOEA [None]
  - PAIN IN EXTREMITY [None]
  - RHABDOMYOLYSIS [None]
